FAERS Safety Report 20543425 (Version 1)
Quarter: 2022Q1

REPORT INFORMATION
  Report Type: Spontaneous
  Country: CN (occurrence: CN)
  Receive Date: 20220302
  Receipt Date: 20220302
  Transmission Date: 20220424
  Serious: Yes (Other)
  Sender: FDA-Public Use
  Company Number: CN-009507513-2202CHN008536

PATIENT
  Age: 81 Year
  Sex: Male
  Weight: 70 kg

DRUGS (4)
  1. CILASTATIN SODIUM\IMIPENEM [Suspect]
     Active Substance: CILASTATIN SODIUM\IMIPENEM
     Indication: Infection
     Dosage: 1 G, Q8H
     Route: 041
     Dates: start: 20220221, end: 20220223
  2. GLYCERIN\MEDIUM-CHAIN TRIGLYCERIDES\PHOSPHOLIPID\SOYBEAN OIL [Concomitant]
     Active Substance: GLYCERIN\MEDIUM-CHAIN TRIGLYCERIDES\PHOSPHOLIPID\SOYBEAN OIL
     Indication: Nutritional supplementation
     Dosage: 250 ML, QD
     Route: 041
     Dates: start: 20220221, end: 20220223
  3. CARBOHYDRATES\ELECTROLYTES NOS [Concomitant]
     Active Substance: CARBOHYDRATES\ELECTROLYTES NOS
     Indication: Nutritional supplementation
     Dosage: 1000 ML, QD
     Route: 041
     Dates: start: 20220221, end: 20220223
  4. SODIUM CHLORIDE [Concomitant]
     Active Substance: SODIUM CHLORIDE
     Dosage: 50 ML, Q8H
     Route: 041
     Dates: start: 20220221

REACTIONS (2)
  - Delirium [Recovering/Resolving]
  - Dysphoria [Recovering/Resolving]

NARRATIVE: CASE EVENT DATE: 20220222
